FAERS Safety Report 4734142-8 (Version None)
Quarter: 2005Q3

REPORT INFORMATION
  Report Type: 
  Country: None (occurrence: None)
  Receive Date: 20050729
  Receipt Date: 20050718
  Transmission Date: 20060218
  Serious: Yes (Hospitalization, Other)
  Sender: FDA-Public Use
  Company Number: 2005103560

PATIENT
  Age: 57 Year
  Sex: Male
  Weight: 117.9352 kg

DRUGS (4)
  1. BEXTRA [Suspect]
     Indication: MYALGIA
     Dosage: 20 MG (DAILY INTERVAL:  EVERY DAY)
     Dates: start: 20020101, end: 20030901
  2. ALL OTHER THERAPEUTIC PRODUCTS (ALL OTHER THERAPEUTIC PRODUCTS) [Concomitant]
  3. ZOLOFT [Concomitant]
  4. NEXIUM [Concomitant]

REACTIONS (5)
  - CHEST PAIN [None]
  - GASTRIC DISORDER [None]
  - JOINT LIGAMENT RUPTURE [None]
  - MUSCLE RUPTURE [None]
  - SKIN EXFOLIATION [None]
